FAERS Safety Report 6032646-1 (Version None)
Quarter: 2009Q1

REPORT INFORMATION
  Report Type: 
  Country: None (occurrence: None)
  Receive Date: 20090107
  Receipt Date: 20090107
  Transmission Date: 20090719
  Serious: Yes (Hospitalization)
  Sender: FDA-Public Use
  Company Number: None

PATIENT
  Age: 67 Year
  Sex: Male
  Weight: 58.9676 kg

DRUGS (11)
  1. BEVACIZUMAB 10MG/KG [Suspect]
     Indication: PANCREATIC CARCINOMA METASTATIC
     Dosage: 10MG / KGIV, D1+15 28 DAY
     Route: 042
     Dates: start: 20080421
  2. GEMCITABINE [Suspect]
     Indication: PANCREATIC CARCINOMA METASTATIC
     Dosage: IV DAYS 1+15 CYCLE
     Route: 042
     Dates: start: 20080421
  3. FLUOROURACIL [Suspect]
     Indication: PANCREATIC CARCINOMA METASTATIC
     Dosage: IV DAYS 1+15 CYCLE
     Route: 042
     Dates: start: 20080421
  4. ACIPHEX [Concomitant]
  5. ASPIRIN [Concomitant]
  6. CREON [Concomitant]
  7. EMLA [Concomitant]
  8. IMODIUM A-D [Concomitant]
  9. LOMOTIL [Concomitant]
  10. MULTI-VITAMIN [Concomitant]
  11. VICODIN [Concomitant]

REACTIONS (1)
  - ANAEMIA [None]
